FAERS Safety Report 4936796-X (Version None)
Quarter: 2006Q1

REPORT INFORMATION
  Report Type: 
  Country: None (occurrence: None)
  Receive Date: 20060307
  Receipt Date: 20050930
  Transmission Date: 20060701
  Serious: Yes (Disabling, Other)
  Sender: FDA-Public Use
  Company Number: US-MERCK-0510USA01497

PATIENT

DRUGS (3)
  1. VIOXX [Suspect]
     Route: 048
     Dates: start: 20030701, end: 20040901
  2. CELEBREX [Suspect]
     Route: 065
     Dates: start: 20030701, end: 20040901
  3. BEXTRA [Suspect]
     Route: 065
     Dates: start: 20030701, end: 20050401

REACTIONS (3)
  - DEEP VEIN THROMBOSIS [None]
  - PULMONARY EMBOLISM [None]
  - TRANSIENT ISCHAEMIC ATTACK [None]
